FAERS Safety Report 14578006 (Version 7)
Quarter: 2018Q3

REPORT INFORMATION
  Report Type: Report from Study
  Country: GB (occurrence: GB)
  Receive Date: 20180227
  Receipt Date: 20180918
  Transmission Date: 20181010
  Serious: Yes (Hospitalization, Other)
  Sender: FDA-Public Use
  Company Number: GB-ASPEN-GLO2018GB001727

PATIENT
  Age: 60 Year
  Sex: Female
  Weight: 52.3 kg

DRUGS (26)
  1. DEXAMETHASONE. [Suspect]
     Active Substance: DEXAMETHASONE
     Dosage: 40 MG, WEEKLY
     Route: 048
     Dates: start: 20170320
  2. METHOTREXATE. [Concomitant]
     Active Substance: METHOTREXATE
     Dosage: UNK
     Route: 065
  3. NINLARO [Suspect]
     Active Substance: IXAZOMIB CITRATE
     Indication: PLASMA CELL MYELOMA
     Dosage: 4 MG
     Route: 048
     Dates: start: 20170320, end: 20170724
  4. HYDROCORTISONE. [Concomitant]
     Active Substance: HYDROCORTISONE
     Indication: PLASMA CELL MYELOMA
     Dosage: 25 MG, Q2WEEKS
     Route: 065
     Dates: start: 20171115, end: 20171221
  5. ASA [Concomitant]
     Active Substance: ASPIRIN
     Indication: THROMBOSIS PROPHYLAXIS
     Dosage: UNK
     Route: 065
  6. HEPARIN [Concomitant]
     Active Substance: HEPARIN SODIUM
     Indication: THROMBOSIS PROPHYLAXIS
     Dosage: UNK
     Route: 065
  7. CYTARABINE. [Concomitant]
     Active Substance: CYTARABINE
     Indication: PLASMA CELL MYELOMA
     Dosage: 50 MG
     Route: 042
     Dates: start: 20171115, end: 20171221
  8. DEXAMETHASONE. [Suspect]
     Active Substance: DEXAMETHASONE
     Dosage: 20 MG, QD
     Route: 048
     Dates: start: 20171108, end: 20171111
  9. REVLIMID [Suspect]
     Active Substance: LENALIDOMIDE
     Dosage: 25 MG
     Route: 048
  10. CYTOXAN [Suspect]
     Active Substance: CYCLOPHOSPHAMIDE
     Indication: PLASMA CELL MYELOMA
     Dosage: 600 MG, QD
     Route: 042
     Dates: start: 20171108, end: 20171111
  11. ETOPOSIDE. [Suspect]
     Active Substance: ETOPOSIDE
     Indication: PLASMA CELL MYELOMA
     Dosage: 60 MG, QD
     Route: 042
     Dates: start: 20171108, end: 20171111
  12. TINZAPARIN [Concomitant]
     Active Substance: TINZAPARIN
     Indication: THROMBOSIS PROPHYLAXIS
     Dosage: UNK
     Route: 065
  13. DEXAMETHASONE. [Suspect]
     Active Substance: DEXAMETHASONE
     Indication: PLASMA CELL MYELOMA
     Dosage: 15 MG, WEEKLY
     Route: 048
     Dates: start: 20170320, end: 20171019
  14. DEXAMETHASONE. [Suspect]
     Active Substance: DEXAMETHASONE
     Dosage: 40 MG
     Route: 048
  15. REVLIMID [Suspect]
     Active Substance: LENALIDOMIDE
     Indication: PLASMA CELL MYELOMA
     Dosage: 15 MG
     Route: 048
     Dates: start: 20170511, end: 20171019
  16. VELCADE [Concomitant]
     Active Substance: BORTEZOMIB
     Indication: PLASMA CELL MYELOMA
     Dosage: 2 MG
     Route: 058
  17. METHOTREXATE. [Concomitant]
     Active Substance: METHOTREXATE
     Dosage: 12.5 MG, Q2WEEKS
     Route: 042
     Dates: start: 20171115, end: 20171221
  18. NINLARO [Suspect]
     Active Substance: IXAZOMIB CITRATE
     Dosage: 3 MG
     Route: 048
     Dates: start: 20170706, end: 20170724
  19. HYDROCORTISONE. [Concomitant]
     Active Substance: HYDROCORTISONE
     Dosage: UNK
     Route: 065
  20. FILGRASTIM [Concomitant]
     Active Substance: FILGRASTIM
     Indication: PRODUCT USED FOR UNKNOWN INDICATION
     Dosage: UNK
     Route: 065
  21. METHOTREXATE. [Concomitant]
     Active Substance: METHOTREXATE
     Indication: PLASMA CELL MYELOMA
     Dosage: 12.5 MG
     Route: 042
     Dates: start: 20171115, end: 20171129
  22. DEXAMETHASONE. [Suspect]
     Active Substance: DEXAMETHASONE
     Dosage: 20 MG, QD
     Route: 048
     Dates: start: 20170413
  23. NINLARO [Suspect]
     Active Substance: IXAZOMIB CITRATE
     Dosage: 2 MG
     Route: 048
  24. ADRIAMYCIN [Suspect]
     Active Substance: DOXORUBICIN HYDROCHLORIDE
     Indication: PLASMA CELL MYELOMA
     Dosage: 15 MG, QD
     Route: 042
     Dates: start: 20171108, end: 20171111
  25. PLATINOL [Suspect]
     Active Substance: CISPLATIN
     Indication: PLASMA CELL MYELOMA
     Dosage: 15 MG, QD
     Route: 042
     Dates: start: 20171108, end: 20171111
  26. ZOLEDRONIC ACID [Concomitant]
     Active Substance: ZOLEDRONIC ACID
     Indication: PRODUCT USED FOR UNKNOWN INDICATION
     Dosage: UNK
     Route: 065

REACTIONS (2)
  - Diarrhoea haemorrhagic [Recovered/Resolved]
  - Febrile neutropenia [Recovered/Resolved]

NARRATIVE: CASE EVENT DATE: 20170728
